FAERS Safety Report 7644389-9 (Version None)
Quarter: 2011Q3

REPORT INFORMATION
  Report Type: 
  Country: None (occurrence: None)
  Receive Date: 20110729
  Receipt Date: 20110728
  Transmission Date: 20111222
  Serious: Yes (Hospitalization)
  Sender: FDA-Public Use
  Company Number: DE-ROCHE-725404

PATIENT
  Sex: Female
  Weight: 55 kg

DRUGS (16)
  1. TOCILIZUMAB [Suspect]
     Indication: RHEUMATOID ARTHRITIS
     Dosage: DOSE LEVEL: 8 MG/KG
     Route: 065
     Dates: start: 20100531, end: 20100531
  2. PLACEBO [Suspect]
     Indication: RHEUMATOID ARTHRITIS
     Dosage: FREQUENCY: DAY 1+15, LAST DOSE PRIOR SAE: 19 JANUARY 2010, FORM: INFUSION
     Route: 042
     Dates: start: 20080915
  3. TOCILIZUMAB [Suspect]
     Route: 065
     Dates: start: 20100706, end: 20100706
  4. VALORON [Concomitant]
     Dates: start: 20100601, end: 20100830
  5. ASPIRIN [Concomitant]
     Dates: start: 20081202
  6. VOLTAREN [Suspect]
     Indication: RHEUMATOID ARTHRITIS
     Dosage: VOLTAREN RESINAT
     Route: 065
     Dates: start: 20100608, end: 20100901
  7. DIGIMERCK [Concomitant]
     Dates: start: 20080101
  8. TOCILIZUMAB [Suspect]
     Route: 065
     Dates: start: 20100803, end: 20100803
  9. METHOTREXATE [Suspect]
     Indication: RHEUMATOID ARTHRITIS
     Route: 065
     Dates: start: 20080601
  10. METHOTREXATE [Suspect]
     Route: 065
     Dates: start: 19990501, end: 20100901
  11. SANDOCAL [Concomitant]
     Dates: start: 20060101
  12. FOLIC ACID [Concomitant]
     Dates: start: 19990501
  13. OMEPRAZOLE [Concomitant]
     Dates: start: 20090801
  14. HYDROCHLOROTHIAZIDE [Concomitant]
     Dates: start: 20080101
  15. IRBESARTAN [Concomitant]
     Dates: start: 20100117
  16. BISOPROLOL FUMARATE [Concomitant]
     Dates: start: 20080601

REACTIONS (1)
  - HEPATITIS TOXIC [None]
